FAERS Safety Report 10075517 (Version 2)
Quarter: 2014Q2

REPORT INFORMATION
  Report Type: Report from Study
  Country: CA (occurrence: CA)
  Receive Date: 20140414
  Receipt Date: 20140418
  Transmission Date: 20141212
  Serious: Yes (Life-Threatening)
  Sender: FDA-Public Use
  Company Number: CA-JNJFOC-20140408228

PATIENT
  Age: 49 Year
  Sex: Male
  Weight: 91 kg

DRUGS (3)
  1. REMICADE [Suspect]
     Indication: CROHN^S DISEASE
     Route: 042
     Dates: start: 20070523, end: 20140318
  2. PURINETHOL [Concomitant]
     Dosage: FREQUENCY: DIE
     Route: 048
  3. CIPRO [Concomitant]
     Route: 048

REACTIONS (1)
  - Colon cancer [Not Recovered/Not Resolved]
